FAERS Safety Report 4324919-5 (Version None)
Quarter: 2004Q1

REPORT INFORMATION
  Report Type: 
  Country: None (occurrence: None)
  Receive Date: 20040323
  Receipt Date: 20040210
  Transmission Date: 20041129
  Serious: No
  Sender: FDA-Public Use
  Company Number: M04-341-034

PATIENT
  Age: 63 Year
  Sex: Female
  Weight: 99 kg

DRUGS (2)
  1. VELCADE [Suspect]
     Indication: MULTIPLE MYELOMA
     Dosage: INTRAVENOUS (NOT OTHERWISE REPORTED)
     Route: 042
     Dates: start: 20030901, end: 20031125
  2. PREDNISONE [Concomitant]

REACTIONS (2)
  - NEUROPATHY [None]
  - PLATELET COUNT DECREASED [None]
